FAERS Safety Report 25238442 (Version 1)
Quarter: 2025Q2

REPORT INFORMATION
  Report Type: Spontaneous
  Country: US (occurrence: None)
  Receive Date: 20250424
  Receipt Date: 20250424
  Transmission Date: 20250717
  Serious: Yes (Death, Hospitalization)
  Sender: FDA-CTU
  Company Number: None

PATIENT
  Age: 73 Year
  Sex: Male

DRUGS (1)
  1. POMALYST [Suspect]
     Active Substance: POMALIDOMIDE
     Indication: Plasma cell myeloma
     Dosage: FREQUENCY : DAILY;?
     Route: 048
     Dates: start: 20230419, end: 20250303

REACTIONS (7)
  - Asthenia [None]
  - Dyspnoea [None]
  - Tachycardia [None]
  - Acute myocardial infarction [None]
  - Sepsis [None]
  - Pulmonary embolism [None]
  - Cardio-respiratory arrest [None]

NARRATIVE: CASE EVENT DATE: 20250303
